FAERS Safety Report 7273450-6 (Version None)
Quarter: 2011Q1

REPORT INFORMATION
  Report Type: 
  Country: None (occurrence: None)
  Receive Date: 20110203
  Receipt Date: 20110202
  Transmission Date: 20110831
  Serious: No
  Sender: FDA-Public Use
  Company Number: US-PFIZER INC-2011024373

PATIENT
  Sex: Male

DRUGS (2)
  1. PRISTIQ [Suspect]
     Dosage: UNK
  2. TRAMADOL HCL [Suspect]
     Dosage: UNK

REACTIONS (1)
  - LABORATORY TEST ABNORMAL [None]
